FAERS Safety Report 6356520-6 (Version None)
Quarter: 2009Q3

REPORT INFORMATION
  Report Type: 
  Country: None (occurrence: None)
  Receive Date: 20090915
  Receipt Date: 20090908
  Transmission Date: 20100115
  Serious: Yes (Other)
  Sender: FDA-Public Use
  Company Number: B0593297A

PATIENT
  Sex: Female

DRUGS (1)
  1. FLIXOTIDE [Suspect]
     Indication: ASTHMA
     Dosage: 250MCG PER DAY
     Route: 055

REACTIONS (9)
  - ASTHMA [None]
  - COUGH [None]
  - DARK CIRCLES UNDER EYES [None]
  - EXERCISE TOLERANCE DECREASED [None]
  - LETHARGY [None]
  - MALAISE [None]
  - PALLOR [None]
  - PEAK EXPIRATORY FLOW RATE DECREASED [None]
  - POOR QUALITY SLEEP [None]
